FAERS Safety Report 8005774-9 (Version None)
Quarter: 2011Q4

REPORT INFORMATION
  Report Type: 
  Country: None (occurrence: None)
  Receive Date: 20111223
  Receipt Date: 20111213
  Transmission Date: 20120403
  Serious: Yes (Other)
  Sender: FDA-Public Use
  Company Number: ES-CELGENEUS-144-50794-11121680

PATIENT
  Age: 82 Year
  Sex: Male

DRUGS (2)
  1. TRANSFUSION [Concomitant]
     Route: 041
  2. VIDAZA [Suspect]
     Dosage: 35 MILLIGRAM
     Route: 050
     Dates: start: 20110401, end: 20110901

REACTIONS (2)
  - NEUTROPENIA [None]
  - TOXICITY TO VARIOUS AGENTS [None]
